FAERS Safety Report 25007733 (Version 2)
Quarter: 2025Q2

REPORT INFORMATION
  Report Type: Report from Study
  Country: CA (occurrence: CA)
  Receive Date: 20250225
  Receipt Date: 20250620
  Transmission Date: 20250716
  Serious: Yes (Hospitalization, Other)
  Sender: TAKEDA
  Company Number: CA-TAKEDA-2025TUS010958

PATIENT
  Sex: Male

DRUGS (12)
  1. VEDOLIZUMAB [Suspect]
     Active Substance: VEDOLIZUMAB
     Indication: Crohn^s disease
  2. VEDOLIZUMAB [Suspect]
     Active Substance: VEDOLIZUMAB
  3. IRON [Concomitant]
     Active Substance: IRON
     Indication: Supplementation therapy
  4. PREVACID [Concomitant]
     Active Substance: LANSOPRAZOLE
  5. ATENOLOL [Concomitant]
     Active Substance: ATENOLOL
  6. CANDESARTAN [Concomitant]
     Active Substance: CANDESARTAN
  7. FERROUS SULFATE [Concomitant]
     Active Substance: FERROUS SULFATE
  8. APIXABAN [Concomitant]
     Active Substance: APIXABAN
  9. PRIMIDONE [Concomitant]
     Active Substance: PRIMIDONE
  10. AVODART [Concomitant]
     Active Substance: DUTASTERIDE
  11. FLOMAX [Concomitant]
     Active Substance: TAMSULOSIN HYDROCHLORIDE
  12. VENTOLIN [Concomitant]
     Active Substance: ALBUTEROL SULFATE

REACTIONS (3)
  - Haemoglobin decreased [Recovered/Resolved]
  - Haemorrhoidal haemorrhage [Recovered/Resolved]
  - Abdominal distension [Unknown]
